FAERS Safety Report 9644988 (Version 1)
Quarter: 2013Q4

REPORT INFORMATION
  Report Type: Spontaneous
  Country: US (occurrence: US)
  Receive Date: 20131025
  Receipt Date: 20131025
  Transmission Date: 20140711
  Serious: No
  Sender: FDA-Public Use
  Company Number: US-PFIZER INC-2013304753

PATIENT
  Age: 39 Year
  Sex: Female
  Weight: 52.15 kg

DRUGS (2)
  1. VENLAFAXINE HCL [Suspect]
     Indication: DEPRESSION
     Dosage: 150MG IN THE MORNING AND 37.5MG AT NIGHT
     Dates: end: 2013
  2. ATIVAN [Concomitant]
     Indication: ANXIETY
     Dosage: UNK

REACTIONS (2)
  - Drug intolerance [Unknown]
  - Malaise [Unknown]
